FAERS Safety Report 10562984 (Version 1)
Quarter: 2014Q4

REPORT INFORMATION
  Report Type: Spontaneous
  Country: US (occurrence: None)
  Receive Date: 20141103
  Receipt Date: 20141103
  Transmission Date: 20150529
  Serious: No
  Sender: FDA-Public Use
  Company Number: None

PATIENT
  Age: 59 Year
  Sex: Female
  Weight: 86.18 kg

DRUGS (1)
  1. LIPITOR [Suspect]
     Active Substance: ATORVASTATIN CALCIUM
     Indication: BLOOD CHOLESTEROL INCREASED
     Dosage: 1 PILL A DAY ONCE DAILY TAKEN BY MOUTH
     Route: 048
     Dates: start: 20140619, end: 20140619

REACTIONS (4)
  - Fungal skin infection [None]
  - Pain in extremity [None]
  - Arthralgia [None]
  - Myalgia [None]
